FAERS Safety Report 21170573 (Version 1)
Quarter: 2022Q3

REPORT INFORMATION
  Report Type: Spontaneous
  Country: US (occurrence: US)
  Receive Date: 20220804
  Receipt Date: 20220804
  Transmission Date: 20221026
  Serious: No
  Sender: FDA-Public Use
  Company Number: US-drreddys-SPO/USA/22/0152768

PATIENT
  Age: 17 Year
  Sex: Female

DRUGS (2)
  1. ZENATANE [Suspect]
     Active Substance: ISOTRETINOIN
     Indication: Product used for unknown indication
     Dosage: RMA ISSUE DATE: 28/MAY/2021 12:00:00 AM
  2. ZENATANE [Suspect]
     Active Substance: ISOTRETINOIN
     Dosage: RMA ISSUE DATE: 27/JUNE/2022 03:08:14 PM

REACTIONS (1)
  - Headache [Unknown]
